FAERS Safety Report 8843514 (Version 1)
Quarter: 2012Q4

REPORT INFORMATION
  Report Type: 
  Country: DE (occurrence: DE)
  Receive Date: 20121016
  Receipt Date: 20121016
  Transmission Date: 20130627
  Serious: Yes (Hospitalization)
  Sender: FDA-Public Use
  Company Number: DE-PFIZER INC-2012251736

PATIENT
  Age: 40 Year
  Sex: Male
  Weight: 105.8 kg

DRUGS (7)
  1. GENOTROPIN [Suspect]
     Indication: GROWTH HORMONE DEFICIENCY
     Dosage: 0.3 mg/day, 7 injections/week
     Route: 058
     Dates: start: 20050901
  2. HYDROCORTISONE [Concomitant]
     Indication: BLOOD CORTICOTROPHIN DECREASED
     Dosage: UNK
     Dates: start: 19980501
  3. TESTOVIRON-DEPOT [Concomitant]
     Indication: BLOOD LUTEINISING HORMONE DECREASED
     Dosage: UNK
     Dates: start: 19980501
  4. TESTOVIRON-DEPOT [Concomitant]
     Indication: BLOOD FOLLICLE STIMULATING HORMONE DECREASED
  5. TESTOVIRON-DEPOT [Concomitant]
     Indication: HYPOGONADISM MALE
  6. LEVOTHYROXINE [Concomitant]
     Indication: BLOOD THYROID STIMULATING HORMONE DECREASED
     Dosage: UNK
     Dates: start: 19980501
  7. LEVOTHYROXINE [Concomitant]
     Indication: PRIMARY HYPOTHYROIDISM

REACTIONS (1)
  - Chondropathy [Unknown]
